FAERS Safety Report 9290866 (Version 1)
Quarter: 2013Q2

REPORT INFORMATION
  Report Type: Spontaneous
  Country: US (occurrence: US)
  Receive Date: 20130515
  Receipt Date: 20130515
  Transmission Date: 20140414
  Serious: No
  Sender: FDA-Public Use
  Company Number: US-BAYER-2013-060294

PATIENT
  Age: 19 Year
  Sex: Female
  Weight: 55.33 kg

DRUGS (3)
  1. MIDOL EXTENDED RELIEF CAPLET [Suspect]
     Indication: DYSMENORRHOEA
     Dosage: 1 DF, PRN
     Route: 048
     Dates: start: 20130506, end: 20130508
  2. MIDOL EXTENDED RELIEF CAPLET [Suspect]
     Indication: ABDOMINAL DISTENSION
  3. MIDOL MENSTRUAL COMPLETE FORMULA [Suspect]
     Indication: DYSMENORRHOEA
     Dosage: 1 DF
     Route: 048
     Dates: start: 2005, end: 201302

REACTIONS (3)
  - Drug ineffective [None]
  - Off label use [None]
  - Drug ineffective [None]
